FAERS Safety Report 4887994-5 (Version None)
Quarter: 2006Q1

REPORT INFORMATION
  Report Type: 
  Country: None (occurrence: None)
  Receive Date: 20060123
  Receipt Date: 20050920
  Transmission Date: 20060701
  Serious: Yes (Hospitalization, Disabling)
  Sender: FDA-Public Use
  Company Number: US-MERCK-0509USA03217

PATIENT
  Age: 59 Year
  Sex: Female
  Weight: 81 kg

DRUGS (12)
  1. VIOXX [Suspect]
     Indication: MENISCUS LESION
     Route: 048
     Dates: start: 20030714, end: 20030916
  2. VIOXX [Suspect]
     Route: 048
     Dates: start: 20030707, end: 20030714
  3. VIOXX [Suspect]
     Indication: OSTEOARTHRITIS
     Route: 048
     Dates: start: 20030714, end: 20030916
  4. VIOXX [Suspect]
     Route: 048
     Dates: start: 20030707, end: 20030714
  5. BUSPAR [Concomitant]
     Route: 065
     Dates: start: 20010101
  6. PAMELOR [Concomitant]
     Route: 065
  7. DIOVAN [Concomitant]
     Route: 065
  8. PROCARDIA [Concomitant]
     Route: 065
  9. CALAN [Concomitant]
     Route: 065
  10. VITAMINS (UNSPECIFIED) [Concomitant]
     Route: 065
  11. DARVOCET-N 50 [Concomitant]
     Route: 065
  12. PREMPRO [Concomitant]
     Route: 065

REACTIONS (3)
  - ARTHRALGIA [None]
  - CEREBROVASCULAR ACCIDENT [None]
  - PAIN [None]
